FAERS Safety Report 13706147 (Version 1)
Quarter: 2017Q2

REPORT INFORMATION
  Report Type: Spontaneous
  Country: US (occurrence: US)
  Receive Date: 20170630
  Receipt Date: 20170630
  Transmission Date: 20170830
  Serious: Yes (Other)
  Sender: FDA-Public Use
  Company Number: US-MALLINCKRODT-T201702628

PATIENT
  Age: 52 Year
  Sex: Male
  Weight: 59 kg

DRUGS (10)
  1. LYRICA [Suspect]
     Active Substance: PREGABALIN
     Indication: NEURALGIA
  2. DIAZEPAM. [Suspect]
     Active Substance: DIAZEPAM
     Indication: AGITATION
     Dosage: 10 MG, TID
     Route: 048
     Dates: start: 2012, end: 201704
  3. OXYCODONE [Suspect]
     Active Substance: OXYCODONE
     Dosage: 30-45 MG PER DAY
     Route: 048
  4. DILAUDID [Suspect]
     Active Substance: HYDROMORPHONE HYDROCHLORIDE
     Indication: PAIN
     Dosage: 8 MG, TID
     Route: 048
     Dates: end: 201703
  5. DIAZEPAM. [Suspect]
     Active Substance: DIAZEPAM
     Indication: NERVOUSNESS
  6. DIAZEPAM. [Suspect]
     Active Substance: DIAZEPAM
     Indication: ANXIETY
  7. LYRICA [Suspect]
     Active Substance: PREGABALIN
     Indication: FIBROMYALGIA
     Dosage: 150 MG, QD IN THE MORNING
     Route: 065
     Dates: end: 201702
  8. FENTANYL TRANSDERMAL SYSTEM [Suspect]
     Active Substance: FENTANYL
     Indication: PAIN
     Dosage: 75MCG/HR, Q48HR
     Route: 062
     Dates: end: 20170308
  9. OXYCODONE [Suspect]
     Active Substance: OXYCODONE
     Indication: PAIN
     Dosage: 30 MG, QID (30MG IN THE MORNING, AFTERNNON, AND EVENING, AND 2AM PRN)
     Route: 065
  10. RITALIN [Suspect]
     Active Substance: METHYLPHENIDATE HYDROCHLORIDE
     Indication: LETHARGY
     Dosage: 10 MG, QD
     Route: 048
     Dates: start: 201603, end: 201704

REACTIONS (19)
  - Panic attack [Recovered/Resolved]
  - Aggression [Recovered/Resolved]
  - Agitation [Recovered/Resolved]
  - Irritability [Unknown]
  - Depression [Unknown]
  - Therapeutic response shortened [Recovered/Resolved]
  - Lethargy [Unknown]
  - Therapy cessation [Recovered/Resolved]
  - Thinking abnormal [Unknown]
  - Anger [Unknown]
  - Pain [Unknown]
  - Brain neoplasm [Not Recovered/Not Resolved]
  - Logorrhoea [Recovered/Resolved]
  - Anxiety [Recovered/Resolved]
  - Suicidal ideation [Recovered/Resolved]
  - Intentional product use issue [Recovered/Resolved]
  - Wrong technique in product usage process [Recovered/Resolved]
  - Drug withdrawal syndrome [Unknown]
  - Abnormal dreams [Unknown]

NARRATIVE: CASE EVENT DATE: 2016
